FAERS Safety Report 21057690 (Version 1)
Quarter: 2022Q3

REPORT INFORMATION
  Report Type: Spontaneous
  Country: CZ (occurrence: CZ)
  Receive Date: 20220708
  Receipt Date: 20220708
  Transmission Date: 20221027
  Serious: Yes (Hospitalization)
  Sender: FDA-Public Use
  Company Number: CZ-PFIZER INC-PV202200003738

PATIENT
  Age: 77 Year
  Sex: Female

DRUGS (8)
  1. SUNITINIB [Suspect]
     Active Substance: SUNITINIB
     Indication: Clear cell renal cell carcinoma
     Dosage: 25 MILLIGRAM (REDUCED DOSE, 25 MG)
     Route: 065
     Dates: end: 202205
  2. CITALOPRAM [Concomitant]
     Active Substance: CITALOPRAM HYDROBROMIDE
     Dosage: 10 MILLIGRAM, QD (10 MG, 1X/DAY, IN THE MORNING)
     Route: 065
  3. FUROSEMIDE [Concomitant]
     Active Substance: FUROSEMIDE
     Dosage: 20 MILLIGRAM, QD (20 MG, 1X/DAY (IN THE MORNING)
     Route: 065
  4. BISOPROLOL FUMARATE [Concomitant]
     Active Substance: BISOPROLOL FUMARATE
     Dosage: 2.5 MILLIGRAM, QD (2.5 MG, 1X/DAY (IN THE MORNING)
     Route: 065
  5. PRADAXA [Concomitant]
     Active Substance: DABIGATRAN ETEXILATE MESYLATE
     Indication: Thrombosis
     Dosage: UNK
     Route: 065
  6. CONTROLOC [Concomitant]
     Active Substance: PANTOPRAZOLE SODIUM
     Dosage: 40 MILLIGRAM, QD (40 MG, 1X/DAY, IN THE EVENING)
     Route: 065
  7. ZOLPINOX [Concomitant]
     Dosage: 10 MILLIGRAM, QD (10 MG, 1X/DAY, IN THE EVENING)
     Route: 065
  8. NOVALGIN (METAMIZOLE SODIUM) [Concomitant]
     Active Substance: METAMIZOLE SODIUM
     Indication: Back pain
     Dosage: 3 DOSAGE FORM, QD (1 DF, 3X/DAY)
     Route: 065

REACTIONS (3)
  - Pelvic fracture [Unknown]
  - Fall [Unknown]
  - Blood calcium decreased [Unknown]

NARRATIVE: CASE EVENT DATE: 20220501
